FAERS Safety Report 15758281 (Version 3)
Quarter: 2020Q3

REPORT INFORMATION
  Report Type: Spontaneous
  Country: NL (occurrence: NL)
  Receive Date: 20181225
  Receipt Date: 20200716
  Transmission Date: 20201102
  Serious: Yes (Hospitalization, Other)
  Sender: FDA-Public Use
  Company Number: NL-AUROBINDO-AUR-APL-2018-062332

PATIENT
  Age: 56 Year
  Sex: Male

DRUGS (6)
  1. TRAMADOL. [Suspect]
     Active Substance: TRAMADOL
     Dosage: 50 MG, TID
  2. PIRITRAMIDE [Suspect]
     Active Substance: PIRITRAMIDE
     Indication: PAIN
     Dosage: 10 MILLIGRAM
     Route: 030
  3. GABAPENTIN. [Suspect]
     Active Substance: GABAPENTIN
     Indication: PAIN
     Dosage: 600 MILLIGRAM, DAILY
     Route: 065
  4. TRAMADOL. [Suspect]
     Active Substance: TRAMADOL
     Indication: PAIN
     Dosage: 50 MG 6 TIMES DAILY
     Route: 065
  5. DICLOFENAC [Suspect]
     Active Substance: DICLOFENAC
     Indication: PAIN
     Dosage: 50 MILLIGRAM, 3 TIMES A DAY
     Route: 065
  6. PARACETAMOL [Suspect]
     Active Substance: ACETAMINOPHEN
     Indication: PAIN
     Dosage: 1000 MILLIGRAM, FOUR TIMES/DAY,QID
     Route: 065

REACTIONS (8)
  - Depression [Unknown]
  - Agitation [Unknown]
  - Nerve injury [Unknown]
  - Intentional product misuse [Unknown]
  - Restlessness [Unknown]
  - Drug ineffective [Unknown]
  - Personality disorder [Unknown]
  - Hypoaesthesia [Unknown]
